FAERS Safety Report 7534984-X (Version None)
Quarter: 2011Q2

REPORT INFORMATION
  Report Type: 
  Country: None (occurrence: None)
  Receive Date: 20110609
  Receipt Date: 20090113
  Transmission Date: 20111010
  Serious: Yes (Death, Other)
  Sender: FDA-Public Use
  Company Number: PHHY2009DE00750

PATIENT
  Sex: Female
  Weight: 77 kg

DRUGS (6)
  1. EXJADE [Suspect]
     Indication: HAEMOSIDEROSIS
     Dosage: 500 MG DAILY
     Route: 048
     Dates: start: 20070116, end: 20070529
  2. EXJADE [Suspect]
     Indication: MYELODYSPLASTIC SYNDROME
     Dosage: 750 MG
     Route: 048
     Dates: start: 20061107
  3. METOPROLOL SUCCINATE [Concomitant]
     Indication: HYPERTENSION
  4. PENTAERYTHRITOL TETRANITRATE [Concomitant]
     Indication: HYPERTENSION
  5. ACTRAPHANE [Concomitant]
     Indication: DIABETES MELLITUS
  6. RAMIPRIL [Concomitant]
     Indication: HYPERTENSION

REACTIONS (4)
  - DISEASE PROGRESSION [None]
  - GENERAL PHYSICAL HEALTH DETERIORATION [None]
  - ASTHENIA [None]
  - MYELODYSPLASTIC SYNDROME [None]
